FAERS Safety Report 5241297-8 (Version None)
Quarter: 2007Q1

REPORT INFORMATION
  Report Type: 
  Country: None (occurrence: None)
  Receive Date: 20070212
  Receipt Date: 20070202
  Transmission Date: 20070707
  Serious: Yes (Other)
  Sender: FDA-Public Use
  Company Number: CHP2007US02005

PATIENT
  Age: 3 Year
  Sex: Male

DRUGS (1)
  1. NICOTINE [Suspect]
     Indication: SMOKING CESSATION THERAPY
     Dosage: 14MG, TRANSDERMAL
     Route: 062

REACTIONS (3)
  - ACCIDENTAL EXPOSURE [None]
  - HYPERHIDROSIS [None]
  - STOMACH DISCOMFORT [None]
